FAERS Safety Report 25410792 (Version 1)
Quarter: 2025Q2

REPORT INFORMATION
  Report Type: Spontaneous
  Country: US (occurrence: US)
  Receive Date: 20250609
  Receipt Date: 20250609
  Transmission Date: 20250717
  Serious: Yes (Other)
  Sender: NOVO NORDISK
  Company Number: US-NOVOPROD-1448356

PATIENT

DRUGS (1)
  1. OZEMPIC [Suspect]
     Active Substance: SEMAGLUTIDE
     Indication: Glucose tolerance impaired

REACTIONS (5)
  - Coronary artery disease [Unknown]
  - Hepatic steatosis [Unknown]
  - Metabolic syndrome [Unknown]
  - Weight increased [Unknown]
  - Product use in unapproved indication [Unknown]
